FAERS Safety Report 8065661-7 (Version None)
Quarter: 2012Q1

REPORT INFORMATION
  Report Type: 
  Country: None (occurrence: None)
  Receive Date: 20120117
  Receipt Date: 20120105
  Transmission Date: 20120608
  Serious: Yes (Hospitalization)
  Sender: FDA-Public Use
  Company Number: DSJ-2012-00224

PATIENT
  Age: 65 Year
  Sex: Male

DRUGS (10)
  1. TRIMETAZIDINE (TRIMETAZIDINE) (TRIMETAZIDINE) [Concomitant]
  2. ACETYLSALICYLIC ACID SRT [Concomitant]
  3. LEVOTHYROXINE SODIUM [Concomitant]
  4. WARFARIN SODIUM [Concomitant]
  5. NILOTINIB (NILOTINIB) (NILOTINIB) [Concomitant]
  6. BENICAR HCT [Suspect]
     Indication: HYPERTENSION
     Dosage: 40/12.5 MG (1 IN 1 D),PER ORAL ; 20/12.5 MG (1 IN 1 D),PER ORAL
     Route: 048
     Dates: start: 20110101, end: 20111201
  7. BENICAR HCT [Suspect]
     Indication: HYPERTENSION
     Dosage: 40/12.5 MG (1 IN 1 D),PER ORAL ; 20/12.5 MG (1 IN 1 D),PER ORAL
     Route: 048
     Dates: start: 20111201
  8. AMIODARONE HCL [Concomitant]
  9. ATORVASTATIN (ATORVASTATIN) (ATORVASTATIN) [Concomitant]
  10. METFORMIN HCL [Concomitant]

REACTIONS (1)
  - LEUKAEMIA [None]
